FAERS Safety Report 9989272 (Version 1)
Quarter: 2014Q1

REPORT INFORMATION
  Report Type: Spontaneous
  Country: GB (occurrence: GB)
  Receive Date: 20140310
  Receipt Date: 20140310
  Transmission Date: 20141002
  Serious: Yes (Life-Threatening)
  Sender: FDA-Public Use
  Company Number: GB-JNJFOC-20140303147

PATIENT
  Age: 81 Year
  Sex: Female

DRUGS (7)
  1. XARELTO [Suspect]
     Indication: PRODUCT USED FOR UNKNOWN INDICATION
     Route: 048
     Dates: start: 20131105, end: 20140212
  2. SIMVASTATIN [Concomitant]
     Route: 065
  3. RAMIPRIL [Concomitant]
     Route: 065
  4. SERTRALINE [Concomitant]
     Route: 065
  5. DONEPEZIL [Concomitant]
     Route: 065
  6. CO-DYDRAMOL [Concomitant]
     Route: 065
  7. LATANOPROST [Concomitant]
     Route: 065

REACTIONS (2)
  - Cerebral haemorrhage [Not Recovered/Not Resolved]
  - Convulsion [Unknown]
